FAERS Safety Report 19983053 (Version 1)
Quarter: 2021Q4

REPORT INFORMATION
  Report Type: Spontaneous
  Country: US (occurrence: US)
  Receive Date: 20211021
  Receipt Date: 20211021
  Transmission Date: 20220303
  Serious: Yes (Other)
  Sender: FDA-Public Use
  Company Number: None

PATIENT
  Age: 72 Year
  Sex: Male

DRUGS (2)
  1. AVASTIN [Suspect]
     Active Substance: BEVACIZUMAB
     Indication: Hepatic cancer
     Dosage: ?          OTHER FREQUENCY:EVERY 3 WEEKS;
     Route: 042
     Dates: start: 20210721, end: 20210825
  2. Avastin 100mg [Concomitant]
     Dates: start: 20210721, end: 20210825

REACTIONS (3)
  - Psoriasis [None]
  - Vision blurred [None]
  - Pruritus [None]

NARRATIVE: CASE EVENT DATE: 20210825
